FAERS Safety Report 13759157 (Version 1)
Quarter: 2017Q3

REPORT INFORMATION
  Report Type: Spontaneous
  Country: SE (occurrence: SE)
  Receive Date: 20170717
  Receipt Date: 20170717
  Transmission Date: 20171127
  Serious: Yes (Life-Threatening)
  Sender: FDA-Public Use
  Company Number: SE-TEVA-786114ISR

PATIENT
  Age: 22 Year
  Sex: Female

DRUGS (1)
  1. PAROXETINE. [Suspect]
     Active Substance: PAROXETINE

REACTIONS (10)
  - Nausea [Not Recovered/Not Resolved]
  - Mania [Not Recovered/Not Resolved]
  - Personality change [Not Recovered/Not Resolved]
  - Cognitive disorder [Not Recovered/Not Resolved]
  - Intentional self-injury [Not Recovered/Not Resolved]
  - Loss of libido [Not Recovered/Not Resolved]
  - Paraesthesia [Not Recovered/Not Resolved]
  - Indifference [Not Recovered/Not Resolved]
  - Suicidal behaviour [Not Recovered/Not Resolved]
  - Withdrawal syndrome [Not Recovered/Not Resolved]
